FAERS Safety Report 4445514-3 (Version None)
Quarter: 2004Q3

REPORT INFORMATION
  Report Type: 
  Country: None (occurrence: None)
  Receive Date: 20040804
  Receipt Date: 20040309
  Transmission Date: 20050211
  Serious: Yes (Disabling)
  Sender: FDA-Public Use
  Company Number: 2004-113693-NL

PATIENT
  Age: 69 Year
  Sex: Female

DRUGS (2)
  1. REMERON [Suspect]
     Indication: DEPRESSION
     Dosage: 15 MG DAILY ORAL
     Route: 048
     Dates: start: 20000101, end: 20030101
  2. REMERON [Suspect]
     Indication: INSOMNIA
     Dosage: 15 MG DAILY ORAL
     Route: 048
     Dates: start: 20000101, end: 20030101

REACTIONS (1)
  - TARDIVE DYSKINESIA [None]
